FAERS Safety Report 13552929 (Version 1)
Quarter: 2017Q2

REPORT INFORMATION
  Report Type: Spontaneous
  Country: US (occurrence: US)
  Receive Date: 20170516
  Receipt Date: 20170516
  Transmission Date: 20170830
  Serious: No
  Sender: FDA-Public Use
  Company Number: None

PATIENT
  Age: 62 Year
  Sex: Female

DRUGS (1)
  1. SUTENT [Suspect]
     Active Substance: SUNITINIB MALATE
     Indication: RENAL CANCER
     Dosage: DAILY FOR 14 DAYSM OFF 7 DAYS
     Route: 048
     Dates: start: 20161207

REACTIONS (3)
  - Faeces discoloured [None]
  - Weight increased [None]
  - Diarrhoea [None]
